FAERS Safety Report 16800216 (Version 1)
Quarter: 2019Q3

REPORT INFORMATION
  Report Type: Spontaneous
  Country: US (occurrence: US)
  Receive Date: 20190723
  Receipt Date: 20190723
  Transmission Date: 20191005
  Serious: Yes (Hospitalization)
  Sender: FDA-Public Use
  Company Number: None

PATIENT
  Age: 57 Year
  Sex: Female

DRUGS (12)
  1. METFORMIN [Concomitant]
     Active Substance: METFORMIN HYDROCHLORIDE
  2. CRESEMBA [Suspect]
     Active Substance: ISAVUCONAZONIUM SULFATE
     Indication: MYELOPROLIFERATIVE NEOPLASM
     Dosage: ?          OTHER DOSE:2 CAP;OTHER FREQUENCY:Q8H FOR 2 DAYS;??
     Route: 048
     Dates: start: 20190627
  3. MG-PLUS [Concomitant]
  4. TRIAMCINOLON CREAM [Concomitant]
  5. LOSARTAN POT [Concomitant]
     Active Substance: LOSARTAN POTASSIUM
  6. URSODIOL. [Concomitant]
     Active Substance: URSODIOL
  7. CRESEMBA [Suspect]
     Active Substance: ISAVUCONAZONIUM SULFATE
     Dosage: ?          OTHER DOSE:2 CAPS;?
     Route: 048
     Dates: start: 20190627
  8. MULTI-VITAMIN [Concomitant]
     Active Substance: .ALPHA.-TOCOPHEROL ACETATE, DL-\ASCORBIC ACID\CYANOCOBALAMIN\FLUORIDE ION\FOLIC ACID\NIACIN\PYRIDOXINE\RIBOFLAVIN\THIAMINE\VITAMIN A\VITAMIN D
  9. PREDNISONE. [Concomitant]
     Active Substance: PREDNISONE
  10. SYNTHROID [Concomitant]
     Active Substance: LEVOTHYROXINE SODIUM
  11. NYSTATIN. [Concomitant]
     Active Substance: NYSTATIN
  12. PROCHLORPER [Concomitant]

REACTIONS (1)
  - Bone marrow transplant [None]
